FAERS Safety Report 6976191-5 (Version None)
Quarter: 2010Q3

REPORT INFORMATION
  Report Type: 
  Country: None (occurrence: None)
  Receive Date: 20100910
  Receipt Date: 20100831
  Transmission Date: 20110219
  Serious: Yes (Life-Threatening, Hospitalization)
  Sender: FDA-Public Use
  Company Number: US-PERRIGO-10US012655

PATIENT
  Sex: Male

DRUGS (1)
  1. NAPROXEN 220 MG 140 [Suspect]
     Indication: PRODUCT USED FOR UNKNOWN INDICATION
     Dosage: UNKNOWN
     Route: 048

REACTIONS (10)
  - DUODENAL ULCER HAEMORRHAGE [None]
  - FLASHBACK [None]
  - HAEMATEMESIS [None]
  - HYPOVOLAEMIC SHOCK [None]
  - INTESTINAL PERFORATION [None]
  - MALAISE [None]
  - NAUSEA [None]
  - PAIN [None]
  - UPPER GASTROINTESTINAL HAEMORRHAGE [None]
  - VOMITING PROJECTILE [None]
